FAERS Safety Report 8597602-8 (Version None)
Quarter: 2012Q3

REPORT INFORMATION
  Report Type: 
  Country: None (occurrence: None)
  Receive Date: 20120816
  Receipt Date: 20120808
  Transmission Date: 20120928
  Serious: Yes (Hospitalization)
  Sender: FDA-Public Use
  Company Number: US-BAYER-2012-081513

PATIENT
  Age: 29 Year
  Sex: Female
  Weight: 72.109 kg

DRUGS (27)
  1. SCOPOLAMINE [Concomitant]
     Dosage: 1.5 PATCH
     Route: 061
     Dates: start: 20111019
  2. COLACE [Concomitant]
  3. PERCOCET [Concomitant]
     Dosage: 5/325 1-2 TABLETS EVERY 4-6 HOURS
  4. NEOSTIGMINE METHYLSULFATE [Concomitant]
     Dosage: 3 MG, UNK
     Route: 042
     Dates: start: 20111019
  5. OPTIVE [Concomitant]
     Route: 047
  6. IBUPROFEN [Concomitant]
  7. SENOKOT [Concomitant]
  8. YASMIN [Suspect]
  9. YAZ [Suspect]
  10. ANCEF [Concomitant]
     Dosage: 2 GMS
     Route: 042
     Dates: start: 20111019
  11. LIDOCAINE [Concomitant]
     Dosage: 80 MG, UNK
     Route: 042
     Dates: start: 20111019
  12. ZEMURON [Concomitant]
     Dosage: 60 MG, UNK
     Route: 042
     Dates: start: 20111019
  13. DECADRON PHOSPHATE [Concomitant]
     Dosage: 5 MG, UNK
     Route: 042
     Dates: start: 20111019
  14. DROSPIRENONE AND ETHINYL ESTRADIOL [Suspect]
  15. CETIRIZINE [Concomitant]
     Dosage: 10 MG, UNK
  16. PRILOSEC [Concomitant]
     Dosage: 20 MG, BID
  17. PROPOFOL [Concomitant]
     Dosage: 180 MG, UNK
     Route: 042
     Dates: start: 20111019
  18. HYDROMORPHONE HYDROCHLORIDE [Concomitant]
     Dosage: 1.6 MG, UNK
     Route: 042
     Dates: start: 20111019
  19. GLYCOPYRROLATE [Concomitant]
     Dosage: 0.6 MG, UNK
     Route: 042
     Dates: start: 20111019
  20. LOTEMAX [Concomitant]
     Route: 047
  21. ZYRTEC [Concomitant]
  22. TRIFLURIDINE [Concomitant]
     Route: 047
  23. OMEGA 3 FATTY ACIDS [Concomitant]
  24. FENTANYL [Concomitant]
     Dosage: 250 MCG
     Route: 042
     Dates: start: 20111019
  25. TORADOL [Concomitant]
     Dosage: 30 MG, UNK
     Route: 042
     Dates: start: 20111019
  26. VERSED [Concomitant]
     Dosage: 2 MG, UNK
     Route: 042
     Dates: start: 20111019
  27. ZOFRAN [Concomitant]
     Dosage: 0.4 MG, UNK
     Route: 042
     Dates: start: 20111019

REACTIONS (1)
  - PULMONARY EMBOLISM [None]
